FAERS Safety Report 6259617-4 (Version None)
Quarter: 2009Q3

REPORT INFORMATION
  Report Type: 
  Country: None (occurrence: None)
  Receive Date: 20090708
  Receipt Date: 20090701
  Transmission Date: 20100115
  Serious: No
  Sender: FDA-Public Use
  Company Number: US-JNJFOC-20090700900

PATIENT
  Sex: Female

DRUGS (6)
  1. DURAGESIC-100 [Suspect]
     Route: 062
  2. DURAGESIC-100 [Suspect]
     Indication: OSTEOARTHRITIS
     Route: 062
  3. CELEBREX [Concomitant]
     Indication: ARTHRITIS
     Route: 048
  4. NAPROXEN [Concomitant]
     Indication: ARTHRITIS
     Route: 048
  5. DARVOCET [Concomitant]
     Indication: ARTHRITIS
     Route: 048
  6. IBUPROFEN [Concomitant]
     Indication: ARTHRITIS
     Route: 048

REACTIONS (3)
  - APPLICATION SITE VESICLES [None]
  - DRUG PRESCRIBING ERROR [None]
  - INAPPROPRIATE SCHEDULE OF DRUG ADMINISTRATION [None]
